FAERS Safety Report 9459077 (Version 2)
Quarter: 2013Q3

REPORT INFORMATION
  Report Type: Spontaneous
  Country: US (occurrence: US)
  Receive Date: 20130814
  Receipt Date: 20130927
  Transmission Date: 20140515
  Serious: Yes (Hospitalization)
  Sender: FDA-Public Use
  Company Number: US-B.I. PHARMACEUTICALS,INC./RIDGEFIELD-2013-BI-24534BP

PATIENT
  Age: 76 Year
  Sex: Male
  Weight: 111.13 kg

DRUGS (8)
  1. PRADAXA [Suspect]
     Indication: ANTICOAGULANT THERAPY
     Dosage: 300 MG
     Route: 048
     Dates: start: 20110715, end: 20110821
  2. ASPIRIN [Concomitant]
     Dates: start: 201008
  3. PANTOPRAZOLE [Concomitant]
     Dates: start: 201007
  4. BETAPACE [Concomitant]
     Dates: start: 2010
  5. DOCUSATE SODIUM [Concomitant]
     Dates: start: 201101
  6. FINASTERIDE [Concomitant]
     Dates: start: 201101, end: 201202
  7. LISINOPRIL [Concomitant]
     Dates: start: 201108
  8. NITROGLYCERIN [Concomitant]
     Dates: start: 1968

REACTIONS (2)
  - Lower gastrointestinal haemorrhage [Unknown]
  - Haemorrhagic anaemia [Unknown]
